FAERS Safety Report 6766793-3 (Version None)
Quarter: 2010Q2

REPORT INFORMATION
  Report Type: 
  Country: None (occurrence: None)
  Receive Date: 20100609
  Receipt Date: 20100602
  Transmission Date: 20101027
  Serious: Yes (Other)
  Sender: FDA-Public Use
  Company Number: 1000014348

PATIENT
  Sex: Female

DRUGS (2)
  1. MEMANTINE HCL [Suspect]
  2. MEMANTINE HCL [Suspect]

REACTIONS (1)
  - ILLUSION [None]
